FAERS Safety Report 21354644 (Version 11)
Quarter: 2025Q3

REPORT INFORMATION
  Report Type: Spontaneous
  Country: US (occurrence: US)
  Receive Date: 20220920
  Receipt Date: 20250711
  Transmission Date: 20251021
  Serious: Yes (Hospitalization, Other)
  Sender: PFIZER
  Company Number: US-PFIZER INC-202200568694

PATIENT
  Age: 76 Year
  Sex: Female
  Weight: 65.76 kg

DRUGS (8)
  1. IBRANCE [Suspect]
     Active Substance: PALBOCICLIB
     Indication: Breast cancer metastatic
     Dates: start: 20220106
  2. IBRANCE [Suspect]
     Active Substance: PALBOCICLIB
     Dates: start: 20220815
  3. IBRANCE [Suspect]
     Active Substance: PALBOCICLIB
     Dates: start: 20221222
  4. IBRANCE [Suspect]
     Active Substance: PALBOCICLIB
     Dates: start: 20230323
  5. IBRANCE [Suspect]
     Active Substance: PALBOCICLIB
     Dates: start: 20231012
  6. IBRANCE [Suspect]
     Active Substance: PALBOCICLIB
     Route: 048
  7. IBRANCE [Suspect]
     Active Substance: PALBOCICLIB
     Dosage: 75 MG, 1X/DAY
  8. IBRANCE [Suspect]
     Active Substance: PALBOCICLIB
     Route: 048

REACTIONS (8)
  - Urinary tract infection [Recovered/Resolved]
  - Loss of consciousness [Unknown]
  - Illness [Unknown]
  - Malaise [Unknown]
  - Oropharyngeal pain [Unknown]
  - Cough [Unknown]
  - Insomnia [Unknown]
  - Product prescribing error [Unknown]

NARRATIVE: CASE EVENT DATE: 20220101
